FAERS Safety Report 7203083-9 (Version None)
Quarter: 2010Q4

REPORT INFORMATION
  Report Type: 
  Country: None (occurrence: None)
  Receive Date: 20101229
  Receipt Date: 20101217
  Transmission Date: 20110411
  Serious: Yes (Life-Threatening)
  Sender: FDA-Public Use
  Company Number: PL-CELGENEUS-129-50794-10121536

PATIENT
  Sex: Male

DRUGS (1)
  1. VIDAZA [Suspect]
     Route: 050

REACTIONS (3)
  - ANAEMIA [None]
  - SKELETAL INJURY [None]
  - THROMBOCYTOPENIA [None]
